FAERS Safety Report 14631352 (Version 2)
Quarter: 2018Q2

REPORT INFORMATION
  Report Type: Spontaneous
  Country: FR (occurrence: FR)
  Receive Date: 20180313
  Receipt Date: 20180417
  Transmission Date: 20180711
  Serious: Yes (Hospitalization, Other)
  Sender: FDA-Public Use
  Company Number: FR-PFIZER INC-2018099247

PATIENT
  Age: 24 Year
  Sex: Male

DRUGS (4)
  1. SUBUTEX [Suspect]
     Active Substance: BUPRENORPHINE HYDROCHLORIDE
     Dosage: UNK
     Route: 045
     Dates: start: 2011, end: 201801
  2. LYRICA [Suspect]
     Active Substance: PREGABALIN
     Dosage: UNK
     Route: 048
     Dates: start: 2017
  3. TRANXENE [Suspect]
     Active Substance: CLORAZEPATE DIPOTASSIUM
     Dosage: UNK
     Route: 048
     Dates: start: 2016
  4. NOCTAMIDE [Suspect]
     Active Substance: LORMETAZEPAM
     Dosage: UNK
     Route: 048
     Dates: start: 2016

REACTIONS (4)
  - Withdrawal syndrome [Recovered/Resolved]
  - Schizoaffective disorder [Not Recovered/Not Resolved]
  - Drug dependence [Recovering/Resolving]
  - Intentional product misuse [Recovering/Resolving]

NARRATIVE: CASE EVENT DATE: 2017
